FAERS Safety Report 12647027 (Version 1)
Quarter: 2016Q3

REPORT INFORMATION
  Report Type: Spontaneous
  Country: US (occurrence: US)
  Receive Date: 20160812
  Receipt Date: 20160812
  Transmission Date: 20161109
  Serious: Yes (Hospitalization)
  Sender: FDA-Public Use
  Company Number: US-DRREDDYS-USA/USA/16/0082184

PATIENT
  Age: 52 Year
  Sex: Male

DRUGS (2)
  1. FLUTICASONE [Interacting]
     Active Substance: FLUTICASONE\FLUTICASONE PROPIONATE
     Indication: COLITIS ULCERATIVE
     Route: 065
  2. DULOXETINE DELAYED-RELEASE CAPSULES [Suspect]
     Active Substance: DULOXETINE
     Indication: DEPRESSION
     Route: 065

REACTIONS (11)
  - Central obesity [Unknown]
  - Drug interaction [Unknown]
  - Night sweats [Unknown]
  - Muscular weakness [Unknown]
  - Oedema peripheral [Unknown]
  - Cushing^s syndrome [Unknown]
  - Contusion [Unknown]
  - Fatigue [Unknown]
  - Swelling face [Unknown]
  - Urine cortisol/creatinine ratio increased [Unknown]
  - Weight increased [Unknown]
